FAERS Safety Report 6921272-5 (Version None)
Quarter: 2010Q3

REPORT INFORMATION
  Report Type: 
  Country: None (occurrence: None)
  Receive Date: 20100812
  Receipt Date: 20100806
  Transmission Date: 20110219
  Serious: Yes (Other)
  Sender: FDA-Public Use
  Company Number: A0875272A

PATIENT
  Sex: Male
  Weight: 75 kg

DRUGS (2)
  1. SERETIDE [Suspect]
     Indication: FATIGUE
     Dosage: 1PUFF TWICE PER DAY
     Route: 065
     Dates: start: 20090401
  2. AMOXICILLIN [Concomitant]
     Dosage: 500MG THREE TIMES PER DAY
     Dates: start: 20100719, end: 20100802

REACTIONS (2)
  - ASTHMATIC CRISIS [None]
  - FATIGUE [None]
